FAERS Safety Report 18462027 (Version 2)
Quarter: 2020Q4

REPORT INFORMATION
  Report Type: Spontaneous
  Country: RU (occurrence: RU)
  Receive Date: 20201104
  Receipt Date: 20201228
  Transmission Date: 20210114
  Serious: Yes (Hospitalization, Other)
  Sender: FDA-Public Use
  Company Number: RU-NOVOPROD-763007

PATIENT
  Age: 13 Year
  Sex: Female
  Weight: 38 kg

DRUGS (7)
  1. NORDITROPIN [Suspect]
     Active Substance: SOMATROPIN
     Indication: TURNER^S SYNDROME
     Dosage: 0.025 MG/KG, QD
     Route: 058
     Dates: start: 20201007, end: 20201010
  2. NORDITROPIN [Suspect]
     Active Substance: SOMATROPIN
     Dosage: 0.025 MG / KG
     Route: 058
     Dates: start: 20201020
  3. NORDITROPIN [Suspect]
     Active Substance: SOMATROPIN
     Dosage: 0.050 MG/KG, QD
     Route: 058
     Dates: start: 20201011, end: 20201013
  4. NORDITROPIN [Suspect]
     Active Substance: SOMATROPIN
     Dosage: 0.033 MG/KG
     Route: 058
     Dates: start: 20201014, end: 20201015
  5. NORDITROPIN [Suspect]
     Active Substance: SOMATROPIN
     Dosage: 0.045 MG / KG - 1.732 MG
     Route: 058
     Dates: start: 20201018, end: 20201019
  6. NORDITROPIN [Suspect]
     Active Substance: SOMATROPIN
     Dosage: 0.036 MG / KG - 1.4 MG (12 CLICKS)
     Route: 058
     Dates: start: 20201016, end: 20201017
  7. NORDITROPIN [Suspect]
     Active Substance: SOMATROPIN
     Dosage: UNK
     Route: 058
     Dates: start: 20201021, end: 20201022

REACTIONS (2)
  - Thrombocytopenia [Not Recovered/Not Resolved]
  - Nausea [Recovered/Resolved]

NARRATIVE: CASE EVENT DATE: 20201011
